FAERS Safety Report 18728650 (Version 1)
Quarter: 2021Q1

REPORT INFORMATION
  Report Type: Other
  Country: JP (occurrence: JP)
  Receive Date: 20210112
  Receipt Date: 20210112
  Transmission Date: 20210419
  Serious: Yes (Other)
  Sender: FDA-Public Use
  Company Number: JP-ROCHE-2746046

PATIENT

DRUGS (5)
  1. BEVACIZUMAB. [Suspect]
     Active Substance: BEVACIZUMAB
     Indication: COLORECTAL CANCER METASTATIC
     Route: 065
  2. FLOUROURACIL [Suspect]
     Active Substance: FLUOROURACIL
     Indication: COLORECTAL CANCER METASTATIC
     Route: 065
  3. LEUCOVORIN. [Suspect]
     Active Substance: LEUCOVORIN
     Indication: COLORECTAL CANCER METASTATIC
     Route: 065
  4. IRINOTECAN [Suspect]
     Active Substance: IRINOTECAN
     Indication: COLORECTAL CANCER METASTATIC
     Route: 065
  5. OXALIPLATIN. [Suspect]
     Active Substance: OXALIPLATIN
     Indication: COLORECTAL CANCER METASTATIC
     Route: 065

REACTIONS (14)
  - Decreased appetite [Unknown]
  - Anaemia [Unknown]
  - Leukopenia [Unknown]
  - Diarrhoea [Unknown]
  - Fatigue [Unknown]
  - Neurotoxicity [Unknown]
  - Nausea [Unknown]
  - Hypertension [Unknown]
  - Proteinuria [Unknown]
  - Thrombocytopenia [Unknown]
  - Alopecia [Unknown]
  - Hypomagnesaemia [Unknown]
  - Neutropenia [Unknown]
  - Dermatitis acneiform [Unknown]
